FAERS Safety Report 5248847-6 (Version None)
Quarter: 2007Q1

REPORT INFORMATION
  Report Type: 
  Country: None (occurrence: None)
  Receive Date: 20070228
  Receipt Date: 20060418
  Transmission Date: 20070707
  Serious: No
  Sender: FDA-Public Use
  Company Number: US-GLAXOSMITHKLINE-A0597132A

PATIENT
  Age: 22 Year
  Sex: Female
  Weight: 60.5 kg

DRUGS (1)
  1. VALTREX [Suspect]
     Dosage: 500MG UNKNOWN
     Route: 048
     Dates: start: 20060306, end: 20060307

REACTIONS (1)
  - OEDEMA GENITAL [None]
